FAERS Safety Report 8403130-2 (Version None)
Quarter: 2012Q2

REPORT INFORMATION
  Report Type: 
  Country: None (occurrence: None)
  Receive Date: 20120601
  Receipt Date: 20120522
  Transmission Date: 20120825
  Serious: No
  Sender: FDA-Public Use
  Company Number: US-JNJFOC-20120518279

PATIENT
  Sex: Female

DRUGS (2)
  1. FENTANYL-100 [Suspect]
     Indication: PRODUCT USED FOR UNKNOWN INDICATION
     Dosage: 50 MG 4 PATCHES EVERY 48 HOUR
     Route: 062
     Dates: start: 20120301
  2. DURAGESIC-100 [Suspect]
     Indication: PRODUCT USED FOR UNKNOWN INDICATION
     Route: 065

REACTIONS (6)
  - INCORRECT DRUG ADMINISTRATION DURATION [None]
  - DRUG DOSE OMISSION [None]
  - VOMITING [None]
  - APPLICATION SITE BURN [None]
  - NAUSEA [None]
  - PAIN [None]
